FAERS Safety Report 7562078-6 (Version None)
Quarter: 2011Q2

REPORT INFORMATION
  Report Type: 
  Country: None (occurrence: None)
  Receive Date: 20110622
  Receipt Date: 20090625
  Transmission Date: 20111010
  Serious: Yes (Other)
  Sender: FDA-Public Use
  Company Number: PHHY2009DE68658

PATIENT

DRUGS (11)
  1. SANDOSTATIN LAR [Suspect]
     Dosage: 0.2 MG, QD
     Route: 058
     Dates: start: 20090616
  2. MCP ^TEMMLER^ [Concomitant]
     Dosage: 1 UNK, TID
  3. CONCOR COR [Concomitant]
     Dosage: 2.5 MG, PRN
  4. SANDOSTATIN LAR [Suspect]
     Indication: PANCREATIC NEUROENDOCRINE TUMOUR
     Dosage: 30 MG, UNK
     Route: 030
     Dates: start: 20090625
  5. METFORMIN HCL [Concomitant]
     Dosage: 0.5 UNK, BID
  6. GABAPENTIN [Concomitant]
     Dosage: 1 UNK, TID
  7. CIPROBID [Concomitant]
     Dosage: 250 MG, BID
  8. LEVOTHYROXINE SODIUM [Concomitant]
     Dosage: 50 UNK, UNK
  9. GUTRON [Concomitant]
     Dosage: 2.5 UNK, BID
  10. ALLOPURINOL [Concomitant]
     Dosage: 100 UNK, QD
  11. OMEPRAZOLE [Concomitant]
     Dosage: 40 UNK, QD

REACTIONS (8)
  - DYSPNOEA [None]
  - DIZZINESS [None]
  - CARDIAC DISORDER [None]
  - HOT FLUSH [None]
  - BLOOD PRESSURE DECREASED [None]
  - DIARRHOEA [None]
  - GENERAL PHYSICAL HEALTH DETERIORATION [None]
  - BACK PAIN [None]
